FAERS Safety Report 12837746 (Version 1)
Quarter: 2016Q4

REPORT INFORMATION
  Report Type: Spontaneous
  Country: US (occurrence: US)
  Receive Date: 20161012
  Receipt Date: 20161012
  Transmission Date: 20170207
  Serious: No
  Sender: FDA-Public Use
  Company Number: US-009507513-1610USA001531

PATIENT
  Age: 30 Year
  Sex: Female
  Weight: 64.4 kg

DRUGS (2)
  1. PERMETHRIN. [Concomitant]
     Active Substance: PERMETHRIN
  2. NEXPLANON [Suspect]
     Active Substance: ETONOGESTREL
     Indication: CONTRACEPTION
     Dosage: 1 DF, EVERY 3 YEARS, LEFT ARM
     Route: 059
     Dates: start: 20160913

REACTIONS (1)
  - Mood swings [Unknown]

NARRATIVE: CASE EVENT DATE: 20160930
